FAERS Safety Report 5746466-6 (Version None)
Quarter: 2008Q2

REPORT INFORMATION
  Report Type: 
  Country: None (occurrence: None)
  Receive Date: 20080522
  Receipt Date: 20080515
  Transmission Date: 20081010
  Serious: Yes (Hospitalization)
  Sender: FDA-Public Use
  Company Number: B0520885A

PATIENT
  Age: 76 Year
  Sex: Female

DRUGS (15)
  1. AVANDIA [Suspect]
     Dosage: 4MG PER DAY
     Route: 048
     Dates: start: 20071222, end: 20080220
  2. MEDIATENSYL [Concomitant]
     Route: 048
     Dates: start: 19960101, end: 20080201
  3. REPAGLINIDE [Concomitant]
     Dosage: 2MG THREE TIMES PER DAY
     Route: 048
     Dates: start: 20071222
  4. ATENOLOL [Concomitant]
     Indication: DRUG USE FOR UNKNOWN INDICATION
     Dosage: 50MG PER DAY
     Route: 048
  5. NEXIUM [Concomitant]
     Indication: DRUG USE FOR UNKNOWN INDICATION
     Dosage: 40MG PER DAY
     Route: 048
     Dates: end: 20080219
  6. LEVOTHYROXINE SODIUM [Concomitant]
     Dosage: 62.5MCG PER DAY
     Route: 048
  7. ATACAND [Concomitant]
     Route: 048
     Dates: start: 19960101
  8. ASPEGIC 1000 [Concomitant]
     Indication: DRUG USE FOR UNKNOWN INDICATION
     Route: 048
     Dates: start: 19960101
  9. INEGY [Concomitant]
     Indication: DRUG USE FOR UNKNOWN INDICATION
     Route: 048
     Dates: start: 20080216, end: 20080219
  10. ULTRACET [Concomitant]
     Indication: DRUG USE FOR UNKNOWN INDICATION
     Route: 048
     Dates: end: 20080219
  11. PLAVIX [Concomitant]
     Indication: DRUG USE FOR UNKNOWN INDICATION
     Route: 048
     Dates: end: 20080221
  12. ZOLPIDEM [Concomitant]
     Indication: DRUG USE FOR UNKNOWN INDICATION
     Route: 048
     Dates: start: 20080216
  13. MOPRAL [Concomitant]
     Indication: DRUG USE FOR UNKNOWN INDICATION
     Route: 048
     Dates: start: 20080220
  14. PRAVASTATIN [Concomitant]
     Indication: DRUG USE FOR UNKNOWN INDICATION
     Route: 065
     Dates: start: 20080220
  15. LASILIX [Concomitant]
     Route: 048
     Dates: start: 19960101

REACTIONS (14)
  - ANGINA PECTORIS [None]
  - ASTHENIA [None]
  - CARDIAC FAILURE [None]
  - DYSPNOEA AT REST [None]
  - HYPERTHYROIDISM [None]
  - HYPOKALAEMIA [None]
  - IRON DEFICIENCY [None]
  - MICROCYTIC ANAEMIA [None]
  - OEDEMA PERIPHERAL [None]
  - ORTHOPNOEA [None]
  - RALES [None]
  - RENAL FAILURE [None]
  - SLEEP APNOEA SYNDROME [None]
  - WEIGHT INCREASED [None]
